FAERS Safety Report 5738414-X (Version None)
Quarter: 2008Q2

REPORT INFORMATION
  Report Type: 
  Country: None (occurrence: None)
  Receive Date: 20080513
  Receipt Date: 20080430
  Transmission Date: 20081010
  Serious: Yes (Hospitalization)
  Sender: FDA-Public Use
  Company Number: PAR_02128_2008

PATIENT
  Sex: Female
  Weight: 35.3806 kg

DRUGS (11)
  1. MEGACE ES [Suspect]
     Indication: DECREASED APPETITE
     Dosage: 1 DF QD 625 MG/5 ML ORAL
     Route: 048
  2. MEGACE ES [Suspect]
     Indication: WEIGHT DECREASED
     Dosage: 1 DF QD 625 MG/5 ML ORAL
     Route: 048
  3. CELEBREX [Concomitant]
  4. CLORAZEPATE [Concomitant]
  5. VITAMIN B12 NOS [Concomitant]
  6. METHOTREXATE [Concomitant]
  7. FOSAMAX [Concomitant]
  8. FOLIC ACID [Concomitant]
  9. VITAMIN CAP [Concomitant]
  10. CALCIUM [Concomitant]
  11. HYDROCODONE BITARTRATE [Concomitant]

REACTIONS (5)
  - ALOPECIA [None]
  - BLOOD GLUCOSE INCREASED [None]
  - FALL [None]
  - HIP FRACTURE [None]
  - VAGINAL HAEMORRHAGE [None]
